FAERS Safety Report 23090028 (Version 1)
Quarter: 2023Q4

REPORT INFORMATION
  Report Type: Spontaneous
  Country: US (occurrence: None)
  Receive Date: 20231019
  Receipt Date: 20231019
  Transmission Date: 20240109
  Serious: Yes (Hospitalization)
  Sender: FDA-Public Use
  Company Number: None

PATIENT
  Age: 75 Year
  Sex: Male
  Weight: 97.9 kg

DRUGS (1)
  1. SPIRONOLACTONE [Suspect]
     Active Substance: SPIRONOLACTONE
     Dates: start: 20221003, end: 20221122

REACTIONS (5)
  - Blood creatinine increased [None]
  - Hyperkalaemia [None]
  - Haemolysis [None]
  - Electrocardiogram T wave amplitude increased [None]
  - Urine output decreased [None]

NARRATIVE: CASE EVENT DATE: 20221122
